FAERS Safety Report 12804141 (Version 5)
Quarter: 2017Q3

REPORT INFORMATION
  Report Type: Spontaneous
  Country: US (occurrence: US)
  Receive Date: 20161003
  Receipt Date: 20170707
  Transmission Date: 20171127
  Serious: Yes (Other)
  Sender: FDA-Public Use
  Company Number: US-PFIZER INC-2016460449

PATIENT
  Age: 34 Year
  Sex: Female

DRUGS (2)
  1. TESTOSTERONE CIPIONATE [Suspect]
     Active Substance: TESTOSTERONE
     Dosage: 60 MG (SUBCUTANEOUS AND INTRAMUSCULAR)
     Route: 030
  2. TESTOSTERONE CIPIONATE [Suspect]
     Active Substance: TESTOSTERONE
     Indication: TRANSGENDER HORMONAL THERAPY
     Dosage: 60 MG (SUBCUTANEOUS AND INTRAMUSCULAR)
     Route: 058

REACTIONS (2)
  - Uterine cervical metaplasia [Unknown]
  - Product use issue [Unknown]
